FAERS Safety Report 12142535 (Version 1)
Quarter: 2016Q1

REPORT INFORMATION
  Report Type: Spontaneous
  Country: CA (occurrence: CA)
  Receive Date: 20160303
  Receipt Date: 20160303
  Transmission Date: 20160526
  Serious: Yes (Other)
  Sender: FDA-Public Use
  Company Number: CA-TEVA-639341ACC

PATIENT
  Age: 72 Year
  Sex: Female
  Weight: 52.21 kg

DRUGS (1)
  1. VENLAFAXINE XR [Suspect]
     Active Substance: VENLAFAXINE HYDROCHLORIDE
     Indication: DEPRESSION
     Dosage: 1 DOSAGE FORMS DAILY;
     Route: 048

REACTIONS (3)
  - Diplopia [Recovered/Resolved]
  - Visual impairment [Recovered/Resolved]
  - Impaired driving ability [Recovered/Resolved]
